FAERS Safety Report 7519367-0 (Version None)
Quarter: 2011Q2

REPORT INFORMATION
  Report Type: 
  Country: None (occurrence: None)
  Receive Date: 20110602
  Receipt Date: 20110110
  Transmission Date: 20111010
  Serious: Yes (Other)
  Sender: FDA-Public Use
  Company Number: PHHY2011DK45819

PATIENT
  Sex: Female

DRUGS (12)
  1. PREDNISONE [Suspect]
     Dosage: 20 MG, TID
     Route: 048
     Dates: start: 20060829, end: 20061010
  2. DARROW-GLUKOSE [Concomitant]
     Dosage: UNK
  3. CYCLOPHOSPHAMIDE [Suspect]
     Dosage: 775 MG, QD
     Route: 042
     Dates: start: 20060925, end: 20061003
  4. PROCARBAZINE HYDROCHLORIDE [Suspect]
     Indication: HODGKIN'S DISEASE
     Dosage: 50 MG, TID
     Route: 048
     Dates: start: 20060703, end: 20061010
  5. ADRIAMYCIN PFS [Suspect]
     Indication: HODGKIN'S DISEASE
     Dosage: 57.5 MG, UNK
     Route: 042
     Dates: start: 20060508, end: 20060619
  6. ETOPOSIDE [Suspect]
     Indication: HODGKIN'S DISEASE
     Dosage: 180 MG, UNK
     Route: 042
     Dates: start: 20060508, end: 20060609
  7. PREDNISONE [Suspect]
     Dosage: 20 MG, TID
     Route: 048
     Dates: start: 20060703, end: 20060828
  8. CYCLOPHOSPHAMIDE [Suspect]
     Indication: HODGKIN'S DISEASE
     Dosage: 750 MG, UNK
     Route: 042
     Dates: start: 20060703, end: 20060904
  9. MESNA [Suspect]
     Dosage: 230 MG, UNK
     Route: 042
     Dates: start: 20060925, end: 20061003
  10. ONCOVIN [Suspect]
     Indication: HODGKIN'S DISEASE
     Dosage: 2 MG, UNK
     Route: 042
     Dates: start: 20060508, end: 20061003
  11. PREDNISONE [Suspect]
     Indication: HODGKIN'S DISEASE
     Dosage: 20 MG, TID
     Route: 048
     Dates: start: 20060508, end: 20060703
  12. MESNA [Suspect]
     Indication: HODGKIN'S DISEASE
     Dosage: 200 MG, UNK
     Route: 042
     Dates: start: 20060703, end: 20060904

REACTIONS (9)
  - PERTUSSIS [None]
  - PAIN [None]
  - INTERVERTEBRAL DISC PROTRUSION [None]
  - ARTHRALGIA [None]
  - LYMPHADENOPATHY [None]
  - BONE PAIN [None]
  - BACK PAIN [None]
  - OSTEONECROSIS [None]
  - FATIGUE [None]
